FAERS Safety Report 5348075-X (Version None)
Quarter: 2007Q2

REPORT INFORMATION
  Report Type: 
  Country: None (occurrence: None)
  Receive Date: 20070606
  Receipt Date: 20070523
  Transmission Date: 20071010
  Serious: Yes (Hospitalization, Other)
  Sender: FDA-Public Use
  Company Number: US-ELI_LILLY_AND_COMPANY-US200704006551

PATIENT
  Sex: Female

DRUGS (2)
  1. EVISTA [Suspect]
     Indication: OSTEOPENIA
     Dosage: UNK, UNK
     Route: 048
     Dates: start: 19950501, end: 20040101
  2. NEXIUM [Suspect]

REACTIONS (4)
  - ARTHRITIS [None]
  - COLD SWEAT [None]
  - CORONARY ARTERY OCCLUSION [None]
  - DYSPNOEA [None]
